FAERS Safety Report 5152395-1 (Version None)
Quarter: 2006Q4

REPORT INFORMATION
  Report Type: 
  Country: None (occurrence: None)
  Receive Date: 20061109
  Receipt Date: 20061103
  Transmission Date: 20070319
  Serious: Yes (Other)
  Sender: FDA-Public Use
  Company Number: THQ2006A00725

PATIENT
  Age: 74 Year
  Sex: Female

DRUGS (9)
  1. ACTOS [Suspect]
     Indication: DIABETES MELLITUS NON-INSULIN-DEPENDENT
     Dosage: SEE IMAGE
     Route: 048
     Dates: start: 20011025, end: 20011112
  2. ACTOS [Suspect]
     Indication: DIABETES MELLITUS NON-INSULIN-DEPENDENT
     Dosage: SEE IMAGE
     Route: 048
     Dates: start: 20011113
  3. NEORECORMON                             (EPOETIN BETA) [Concomitant]
  4. FUROSEMIDE [Concomitant]
  5. COZAAR [Concomitant]
  6. SIMVASTATIN [Concomitant]
  7. LEVOTHYROXINE SODIUM [Concomitant]
  8. ALLOPURINOL [Concomitant]
  9. LASIX [Concomitant]

REACTIONS (2)
  - DYSPNOEA [None]
  - PULMONARY HYPERTENSION [None]
